FAERS Safety Report 13465601 (Version 2)
Quarter: 2017Q2

REPORT INFORMATION
  Report Type: Spontaneous
  Country: JP (occurrence: JP)
  Receive Date: 20170421
  Receipt Date: 20170427
  Transmission Date: 20170830
  Serious: Yes (Other)
  Sender: FDA-Public Use
  Company Number: JP-ROCHE-1922344

PATIENT
  Age: 63 Year
  Sex: Male

DRUGS (7)
  1. ABATACEPT [Concomitant]
     Active Substance: ABATACEPT
  2. PREDNISOLONE. [Concomitant]
     Active Substance: PREDNISOLONE
     Route: 065
  3. IGURATIMOD [Concomitant]
     Active Substance: IGURATIMOD
  4. PREDNISOLONE. [Concomitant]
     Active Substance: PREDNISOLONE
     Route: 065
  5. ACTEMRA [Suspect]
     Active Substance: TOCILIZUMAB
     Indication: RHEUMATOID ARTHRITIS
     Dosage: DOSAGE IS UNCERTAIN.
     Route: 065
  6. METHOTREXATE. [Concomitant]
     Active Substance: METHOTREXATE
  7. METHYLPREDNISOLONE. [Concomitant]
     Active Substance: METHYLPREDNISOLONE
     Route: 042

REACTIONS (4)
  - Arthritis bacterial [Unknown]
  - Staphylococcal infection [Unknown]
  - Hepatitis C virus test positive [Unknown]
  - Hepatic cirrhosis [Unknown]
